FAERS Safety Report 7164014-3 (Version None)
Quarter: 2010Q4

REPORT INFORMATION
  Report Type: 
  Country: None (occurrence: None)
  Receive Date: 20101215
  Receipt Date: 20101208
  Transmission Date: 20110411
  Serious: Yes (Other)
  Sender: FDA-Public Use
  Company Number: A0899737A

PATIENT
  Age: 61 Year
  Sex: Female

DRUGS (5)
  1. ADVAIR [Suspect]
     Indication: ASTHMA
     Route: 055
     Dates: start: 20090401, end: 20090601
  2. ALBUTEROL [Concomitant]
  3. FISH OIL [Concomitant]
  4. CENTRUM SILVER [Concomitant]
  5. ADVIL [Concomitant]

REACTIONS (5)
  - ASTHMA [None]
  - CHRONIC OBSTRUCTIVE PULMONARY DISEASE [None]
  - DRUG INEFFECTIVE [None]
  - PNEUMONIA [None]
  - RESPIRATORY DISORDER [None]
